FAERS Safety Report 8618793-6 (Version None)
Quarter: 2012Q3

REPORT INFORMATION
  Report Type: 
  Country: None (occurrence: None)
  Receive Date: 20120824
  Receipt Date: 20120817
  Transmission Date: 20120928
  Serious: No
  Sender: FDA-Public Use
  Company Number: US-B.I. PHARMACEUTICALS,INC./RIDGEFIELD-2012-BP-19959BP

PATIENT
  Sex: Male

DRUGS (11)
  1. ASPIRIN [Concomitant]
     Indication: CARDIAC DISORDER
     Dosage: 81 MG
  2. TYLENOL [Concomitant]
     Indication: HEADACHE
     Route: 048
  3. TYLENOL [Concomitant]
     Indication: PAIN
  4. PRADAXA [Suspect]
     Indication: ATRIAL FIBRILLATION
     Dosage: 300 MG
     Route: 048
     Dates: start: 20111101
  5. VITAMIN TAB [Concomitant]
     Indication: SUPPLEMENTATION THERAPY
  6. NASCOBAL [Concomitant]
     Indication: NASAL DISORDER
     Dosage: 500 MCG
     Route: 045
  7. LOTENSIN HCT [Concomitant]
     Indication: BLOOD PRESSURE ABNORMAL
     Route: 048
  8. NEURONTIN [Concomitant]
     Indication: NEUROPATHY PERIPHERAL
     Dosage: 1200 MG
     Route: 048
  9. SIMVASTATIN [Concomitant]
     Indication: BLOOD CHOLESTEROL INCREASED
     Dosage: 40 MG
     Route: 048
  10. TEMAZEPAM [Concomitant]
     Indication: SLEEP DISORDER
     Dosage: 30 MG
     Route: 048
  11. METOPROLOL TARTRATE [Concomitant]
     Indication: HYPERTENSION
     Dosage: 25 MG
     Route: 048

REACTIONS (1)
  - ALOPECIA [None]
